FAERS Safety Report 23142596 (Version 1)
Quarter: 2023Q4

REPORT INFORMATION
  Report Type: Spontaneous
  Country: US (occurrence: None)
  Receive Date: 20231101
  Receipt Date: 20231101
  Transmission Date: 20240109
  Serious: Yes (Other)
  Sender: FDA-Public Use
  Company Number: None

PATIENT
  Age: 71 Year
  Sex: Male

DRUGS (20)
  1. RINVOQ [Suspect]
     Active Substance: UPADACITINIB
     Indication: Colitis ulcerative
     Dosage: FREQUENCY : DAILY;?
     Route: 048
     Dates: start: 20231010, end: 202311
  2. ALLOPURINOL [Concomitant]
     Active Substance: ALLOPURINOL
  3. AMLODIPINE [Concomitant]
     Active Substance: AMLODIPINE BESYLATE
  4. ASPIRIN [Concomitant]
     Active Substance: ASPIRIN
  5. ATORVALIQ SUS [Concomitant]
  6. ATORVASTATIN [Concomitant]
     Active Substance: ATORVASTATIN
  7. ATORVASTATIN [Concomitant]
     Active Substance: ATORVASTATIN
  8. COLCHICINE [Concomitant]
     Active Substance: COLCHICINE
  9. ELIQUIS [Concomitant]
     Active Substance: APIXABAN
  10. FERROUS SULFATE [Concomitant]
     Active Substance: FERROUS SULFATE
  11. FUROSEMIDE [Concomitant]
     Active Substance: FUROSEMIDE
  12. IRON [Concomitant]
     Active Substance: IRON
  13. ISOSORBIDE MONONITRATE [Concomitant]
     Active Substance: ISOSORBIDE MONONITRATE
  14. LEVOTHYROXINE [Concomitant]
     Active Substance: LEVOTHYROXINE
  15. NITROGLYCERIN SUB [Concomitant]
  16. OMEPRAZOLE [Concomitant]
     Active Substance: OMEPRAZOLE
  17. SOTALOL [Concomitant]
     Active Substance: SOTALOL
  18. HERBALS\TURMERIC [Concomitant]
     Active Substance: HERBALS\TURMERIC
  19. VITAMIN C [Concomitant]
     Active Substance: ASCORBIC ACID
  20. VITAMIN D3 [Concomitant]
     Active Substance: CHOLECALCIFEROL

REACTIONS (1)
  - Colectomy [None]

NARRATIVE: CASE EVENT DATE: 20231001
